FAERS Safety Report 23038142 (Version 3)
Quarter: 2023Q4

REPORT INFORMATION
  Report Type: Report from Study
  Country: IL (occurrence: IL)
  Receive Date: 20231006
  Receipt Date: 20231017
  Transmission Date: 20240109
  Serious: Yes (Hospitalization, Other)
  Sender: FDA-Public Use
  Company Number: IL-BAXTER-2023BAX032475

PATIENT
  Age: 64 Year
  Sex: Female
  Weight: 63 kg

DRUGS (22)
  1. CYCLOPHOSPHAMIDE [Suspect]
     Active Substance: CYCLOPHOSPHAMIDE
     Indication: Diffuse large B-cell lymphoma
     Dosage: 1254 MG, EVERY 3 WEEKS
     Route: 042
     Dates: start: 20230620
  2. DOXORUBICIN [Suspect]
     Active Substance: DOXORUBICIN
     Indication: Diffuse large B-cell lymphoma
     Dosage: 84 MG, EVERY 3 WEEKS
     Route: 042
     Dates: start: 20230620
  3. EPCORITAMAB [Suspect]
     Active Substance: EPCORITAMAB
     Indication: Diffuse large B-cell lymphoma
     Dosage: 48 MG C1 (STEP-UP), CYCLES 2 - 4 (21-DAY CYCLE, WEEKLY DOSE), C5 - 8 (21-DAY CYCLE, EVERY 3 WEEKS) P
     Route: 058
     Dates: start: 20230620
  4. VINCRISTINE [Suspect]
     Active Substance: VINCRISTINE
     Indication: Diffuse large B-cell lymphoma
     Dosage: 2 MG, EVERY 3 WEEKS, ONGOING
     Route: 042
     Dates: start: 20230620
  5. RITUXIMAB [Suspect]
     Active Substance: RITUXIMAB
     Indication: Diffuse large B-cell lymphoma
     Dosage: 628 MG, EVERY 3 WEEKS, ONGOING
     Route: 042
     Dates: start: 20230620
  6. PREDNISONE [Suspect]
     Active Substance: PREDNISONE
     Indication: Diffuse large B-cell lymphoma
     Dosage: 100 MG C1-6, DAY 1-5, EVERY 1 DAYS, ONGOING
     Route: 048
     Dates: start: 20230620
  7. ESTRIOL [Concomitant]
     Active Substance: ESTRIOL
     Indication: Atrophic vulvovaginitis
     Dosage: 15 MG, AS NECESSARY (START DATE: 2015)
     Route: 065
  8. METAMIZOLE [Concomitant]
     Active Substance: METAMIZOLE
     Indication: Cytokine release syndrome
     Dosage: 500 MG, AS NECESSARY (START DATE: 2023)
     Route: 065
  9. METAMIZOLE [Concomitant]
     Active Substance: METAMIZOLE
     Indication: Pyrexia
     Dosage: 1 G, TOTAL
     Route: 065
     Dates: start: 20230621, end: 20230621
  10. METAMIZOLE [Concomitant]
     Active Substance: METAMIZOLE
     Indication: Pain
     Dosage: 1 G, TOTAL
     Route: 065
     Dates: start: 20230724, end: 20230724
  11. OXYCODONE [Concomitant]
     Active Substance: OXYCODONE
     Indication: Pain
     Dosage: 2 MG, AS NECESSARY (START DATE: MAY-2023)
     Route: 065
  12. ACETAMINOPHEN [Concomitant]
     Active Substance: ACETAMINOPHEN
     Indication: Premedication
     Dosage: 1000 MG PER PROTOCOL, AS NECESSARY
     Route: 065
     Dates: start: 20230620
  13. PROMETHAZINE [Concomitant]
     Active Substance: PROMETHAZINE HYDROCHLORIDE
     Indication: Prophylaxis of nausea and vomiting
     Dosage: 12.5 MG PER PROTOCOL, AS NECESSARY
     Route: 065
     Dates: start: 20230620
  14. PROMETHAZINE [Concomitant]
     Active Substance: PROMETHAZINE HYDROCHLORIDE
     Indication: Premedication
  15. ALLOPURINOL [Concomitant]
     Active Substance: ALLOPURINOL
     Indication: Prophylaxis
     Dosage: 300 MG, AS NECESSARY
     Route: 065
     Dates: start: 20230620
  16. SULFAMETHOXAZOLE\TRIMETHOPRIM [Concomitant]
     Active Substance: SULFAMETHOXAZOLE\TRIMETHOPRIM
     Indication: Antifungal prophylaxis
     Dosage: 1 DOSAGE FORM, 3/WEEKS
     Route: 065
     Dates: start: 20230627
  17. METOCLOPRAMIDE [Concomitant]
     Active Substance: METOCLOPRAMIDE
     Indication: Nausea
     Dosage: 10 MG, 2/DAYS
     Route: 065
     Dates: start: 20230627
  18. FULPHILA [Concomitant]
     Active Substance: PEGFILGRASTIM-JMDB
     Indication: Prophylaxis
     Dosage: 6 MG, EVERY 3 WEEKS
     Route: 065
     Dates: start: 20230713
  19. CANNABIS SATIVA SEED OIL\HERBALS [Concomitant]
     Active Substance: CANNABIS SATIVA SEED OIL\HERBALS
     Indication: Insomnia
     Dosage: 1 DROPS, 2/DAYS
     Route: 065
     Dates: start: 20230720
  20. GRANISETRON [Concomitant]
     Active Substance: GRANISETRON
     Indication: Nausea
     Dosage: 1 MG, 2/DAYS
     Route: 065
     Dates: start: 20230801
  21. GRANISETRON [Concomitant]
     Active Substance: GRANISETRON
     Dosage: 1 MG, TOTAL
     Route: 065
     Dates: start: 20230823, end: 20230823
  22. DEXAMETHASONE [Concomitant]
     Active Substance: DEXAMETHASONE
     Indication: Prophylaxis
     Dosage: 20 MG PER PROTOCOL, AS NECESSARY
     Route: 065
     Dates: start: 20230621

REACTIONS (1)
  - Febrile neutropenia [Recovered/Resolved]

NARRATIVE: CASE EVENT DATE: 20230920
